FAERS Safety Report 20521253 (Version 3)
Quarter: 2023Q4

REPORT INFORMATION
  Report Type: Other
  Country: US (occurrence: None)
  Receive Date: 20220226
  Receipt Date: 20231004
  Transmission Date: 20240110
  Serious: No
  Sender: FDA-Public Use
  Company Number: US-ROCHE-3033256

PATIENT
  Age: 38 Year
  Sex: Female
  Weight: 118.95 kg

DRUGS (1)
  1. OCREVUS [Suspect]
     Active Substance: OCRELIZUMAB
     Indication: Relapsing-remitting multiple sclerosis
     Dosage: STRENGTH: 300 MG/10 ML
     Route: 042
     Dates: start: 20201204

REACTIONS (4)
  - Pelvic pain [Unknown]
  - Back pain [Unknown]
  - Pain in extremity [Unknown]
  - Nasopharyngitis [Recovered/Resolved]

NARRATIVE: CASE EVENT DATE: 20230901
